FAERS Safety Report 5084360-7 (Version None)
Quarter: 2006Q3

REPORT INFORMATION
  Report Type: 
  Country: None (occurrence: None)
  Receive Date: 20060816
  Receipt Date: 20060804
  Transmission Date: 20061208
  Serious: Yes (Death)
  Sender: FDA-Public Use
  Company Number: E3810-00096-SOL-US

PATIENT
  Age: 64 Year
  Sex: Male

DRUGS (7)
  1. ACIPHEX [Suspect]
     Indication: GASTROOESOPHAGEAL REFLUX DISEASE
     Dosage: 20 MG ORAL
     Route: 048
     Dates: start: 20010101
  2. PEROCET (OXYCOCET) [Concomitant]
  3. CORDARONE [Concomitant]
  4. FLOMAX [Concomitant]
  5. COUMADIN [Concomitant]
  6. DIAVAN HCT (DICLOFENAC SODIUM) [Concomitant]
  7. GLUCOVANCE [Concomitant]

REACTIONS (1)
  - ACUTE RESPIRATORY DISTRESS SYNDROME [None]
